FAERS Safety Report 17366849 (Version 1)
Quarter: 2020Q1

REPORT INFORMATION
  Report Type: Spontaneous
  Country: NO (occurrence: NO)
  Receive Date: 20200204
  Receipt Date: 20200204
  Transmission Date: 20200409
  Serious: Yes (Other)
  Sender: FDA-Public Use
  Company Number: NO-MYLANLABS-2020M1012598

PATIENT
  Age: 28 Year
  Sex: Male
  Weight: 100 kg

DRUGS (2)
  1. ERY-MAX [Suspect]
     Active Substance: ERYTHROMYCIN
     Indication: STREPTOCOCCAL INFECTION
     Dosage: 500 MILLIGRAM, BID
     Dates: start: 20191126
  2. MAXALT [Concomitant]
     Active Substance: RIZATRIPTAN BENZOATE
     Dosage: UNK

REACTIONS (2)
  - Arrhythmia [Not Recovered/Not Resolved]
  - Tachycardia [Not Recovered/Not Resolved]

NARRATIVE: CASE EVENT DATE: 20191126
